FAERS Safety Report 24906650 (Version 2)
Quarter: 2025Q1

REPORT INFORMATION
  Report Type: Spontaneous
  Country: US (occurrence: US)
  Receive Date: 20250130
  Receipt Date: 20250217
  Transmission Date: 20250408
  Serious: Yes (Other)
  Sender: RADIUS PHARM
  Company Number: US-RADIUS HEALTH INC.-2025US000218

PATIENT
  Sex: Female

DRUGS (1)
  1. TYMLOS [Suspect]
     Active Substance: ABALOPARATIDE
     Indication: Product used for unknown indication
     Route: 058

REACTIONS (7)
  - Head injury [Unknown]
  - Wrist fracture [Unknown]
  - Diplopia [Unknown]
  - Hypoacusis [Unknown]
  - Unevaluable event [Unknown]
  - Headache [Unknown]
  - Muscle spasms [Unknown]
